FAERS Safety Report 14870957 (Version 1)
Quarter: 2018Q2

REPORT INFORMATION
  Report Type: Spontaneous
  Country: US (occurrence: US)
  Receive Date: 20180424
  Receipt Date: 20180424
  Transmission Date: 20180711
  Serious: Yes (Other)
  Sender: FDA-Public Use
  Company Number: None

PATIENT
  Age: 43 Year
  Sex: Female
  Weight: 76.5 kg

DRUGS (7)
  1. MULTI-VITAMIN [Concomitant]
     Active Substance: .ALPHA.-TOCOPHEROL ACETATE, DL-\ASCORBIC ACID\CYANOCOBALAMIN\FLUORIDE ION\FOLIC ACID\NIACIN\PYRIDOXINE\RIBOFLAVIN\THIAMINE\VITAMIN A\VITAMIN D
  2. OSTEO BIO FLEX EASE [Concomitant]
  3. EOS ACTIVE PROTECTION LEMON TWIST SUNSCREEN LIP BALM BROAD SPECTRUM SPF 15 [Suspect]
     Active Substance: AVOBENZONE\HOMOSALATE\OCTOCRYLENE
     Indication: PROPHYLAXIS AGAINST SOLAR RADIATION
     Route: 061
     Dates: start: 20180415, end: 20180423
  4. VITAMIN C [Concomitant]
     Active Substance: ASCORBIC ACID
  5. FLAXSEED [Concomitant]
     Active Substance: FLAX SEED
  6. ZEAXANTHIN [Concomitant]
     Active Substance: ZEAXANTHIN
  7. TURMERIC [Concomitant]
     Active Substance: HERBALS\TURMERIC

REACTIONS (10)
  - Burning sensation [None]
  - Chemical burn [None]
  - Lip erythema [None]
  - Lip pain [None]
  - Haemorrhage [None]
  - Hypersensitivity [None]
  - Chapped lips [None]
  - Oral discomfort [None]
  - Lip dry [None]
  - Lip blister [None]

NARRATIVE: CASE EVENT DATE: 20180423
